FAERS Safety Report 26093676 (Version 1)
Quarter: 2025Q4

REPORT INFORMATION
  Report Type: Spontaneous
  Country: US (occurrence: US)
  Receive Date: 20251126
  Receipt Date: 20251126
  Transmission Date: 20260118
  Serious: Yes (Other)
  Sender: BRISTOL-MYERS SQUIBB COMPANY
  Company Number: US-BRISTOL-MYERS SQUIBB COMPANY-2025-158750

PATIENT
  Age: 65 Year
  Sex: Male

DRUGS (2)
  1. OPDIVO [Suspect]
     Active Substance: NIVOLUMAB
     Indication: Uveal melanoma
     Dosage: ROUTE: INFUSION
  2. YERVOY [Suspect]
     Active Substance: IPILIMUMAB
     Indication: Uveal melanoma

REACTIONS (5)
  - Blindness transient [Unknown]
  - Nasopharyngitis [Unknown]
  - Decreased appetite [Unknown]
  - Weight decreased [Unknown]
  - Vitiligo [Unknown]

NARRATIVE: CASE EVENT DATE: 20241201
